FAERS Safety Report 24371520 (Version 1)
Quarter: 2024Q3

REPORT INFORMATION
  Report Type: Report from Study
  Country: AU (occurrence: AU)
  Receive Date: 20240927
  Receipt Date: 20240927
  Transmission Date: 20241016
  Serious: Yes (Death, Other)
  Sender: EMD SERONO INC
  Company Number: AU-Merck Healthcare KGaA-2023459915

PATIENT
  Sex: Male

DRUGS (2)
  1. TEPOTINIB [Suspect]
     Active Substance: TEPOTINIB
     Indication: Lung adenocarcinoma
     Dosage: 2 TABLETS/DAY
     Dates: start: 202306
  2. OSIMERTINIB [Concomitant]
     Active Substance: OSIMERTINIB
     Indication: Lung adenocarcinoma

REACTIONS (5)
  - Death [Fatal]
  - Endocarditis [Unknown]
  - Embolic stroke [Unknown]
  - Oedema peripheral [Unknown]
  - Off label use [Unknown]
